FAERS Safety Report 5927138-1 (Version None)
Quarter: 2008Q4

REPORT INFORMATION
  Report Type: 
  Country: None (occurrence: None)
  Receive Date: 20081022
  Receipt Date: 20081013
  Transmission Date: 20090506
  Serious: Yes (Other)
  Sender: FDA-Public Use
  Company Number: RO-PFIZER INC-2008085641

PATIENT
  Sex: Female

DRUGS (7)
  1. SORTIS [Suspect]
     Indication: HYPERCHOLESTEROLAEMIA
     Route: 048
     Dates: start: 20060704, end: 20070115
  2. BETASERC [Concomitant]
  3. SERMION [Concomitant]
  4. VINCAMINE [Concomitant]
  5. PRESTARIUM [Concomitant]
  6. METOPROLOL TARTRATE [Concomitant]
  7. TERTENSIF [Concomitant]

REACTIONS (1)
  - MACULAR HOLE [None]
